FAERS Safety Report 5913124-4 (Version None)
Quarter: 2008Q4

REPORT INFORMATION
  Report Type: 
  Country: None (occurrence: None)
  Receive Date: 20081006
  Receipt Date: 20080923
  Transmission Date: 20090506
  Serious: Yes (Hospitalization, Other)
  Sender: FDA-Public Use
  Company Number: 2007BI021025

PATIENT
  Age: 46 Year
  Sex: Male
  Weight: 141.5223 kg

DRUGS (10)
  1. AVONEX [Suspect]
     Indication: MULTIPLE SCLEROSIS
     Dosage: 30 UG; QW; IM
     Route: 030
  2. LISINOPRIL AND HYDROCHLOROTHIAZIDE [Concomitant]
  3. ACTOS [Concomitant]
  4. ALPRAZOLAM [Concomitant]
  5. ASPIRIN [Concomitant]
  6. BUPROPION HCL [Concomitant]
  7. IBUPROFEN TABLETS [Concomitant]
  8. METFORMIN HYDROCHLORIDE [Concomitant]
  9. PERCOCET [Concomitant]
  10. PREV MEDS [Concomitant]

REACTIONS (10)
  - ARTHRALGIA [None]
  - BACK PAIN [None]
  - COLON CANCER [None]
  - DIARRHOEA [None]
  - GLAUCOMA [None]
  - HAEMATOCHEZIA [None]
  - IMPAIRED HEALING [None]
  - LUNG NEOPLASM [None]
  - METASTASES TO LYMPH NODES [None]
  - PRURITUS [None]
